FAERS Safety Report 20657545 (Version 2)
Quarter: 2022Q2

REPORT INFORMATION
  Report Type: Report from Study
  Country: US (occurrence: US)
  Receive Date: 20220331
  Receipt Date: 20220523
  Transmission Date: 20220721
  Serious: Yes (Death, Hospitalization)
  Sender: FDA-Public Use
  Company Number: US-TG THERAPEUTICS INC.-TGT002513

PATIENT
  Age: 71 Year
  Sex: Female
  Weight: 69.388 kg

DRUGS (4)
  1. UBLITUXIMAB [Suspect]
     Active Substance: UBLITUXIMAB
     Indication: Follicular lymphoma
     Dosage: 900 MILLIGRAM
     Dates: start: 20210514, end: 20211223
  2. UBLITUXIMAB [Suspect]
     Active Substance: UBLITUXIMAB
     Indication: Nodal marginal zone B-cell lymphoma
  3. UMBRALISIB [Suspect]
     Active Substance: UMBRALISIB
     Indication: Follicular lymphoma
     Dosage: 800 MILLIGRAM
     Dates: start: 20210514, end: 20220227
  4. UMBRALISIB [Suspect]
     Active Substance: UMBRALISIB
     Indication: Nodal marginal zone B-cell lymphoma

REACTIONS (1)
  - COVID-19 pneumonia [Fatal]

NARRATIVE: CASE EVENT DATE: 20220228
